FAERS Safety Report 6342393-4 (Version None)
Quarter: 2009Q3

REPORT INFORMATION
  Report Type: 
  Country: None (occurrence: None)
  Receive Date: 20090908
  Receipt Date: 20000322
  Transmission Date: 20100115
  Serious: No
  Sender: FDA-Public Use
  Company Number: US-ROCHE-224889

PATIENT
  Sex: Female
  Weight: 56.2 kg

DRUGS (6)
  1. TAMIFLU [Suspect]
     Route: 048
     Dates: start: 19991220, end: 19991223
  2. TYLENOL (CAPLET) [Concomitant]
  3. COMTREX [Concomitant]
  4. THERAFLU [Concomitant]
  5. ROBITUSSIN [Concomitant]
  6. ZITHROMAX [Concomitant]

REACTIONS (3)
  - ABORTION INDUCED [None]
  - DRUG EXPOSURE DURING PREGNANCY [None]
  - PREGNANCY [None]
